FAERS Safety Report 4314677-2 (Version None)
Quarter: 2004Q1

REPORT INFORMATION
  Report Type: 
  Country: None (occurrence: None)
  Receive Date: 20040309
  Receipt Date: 20040309
  Transmission Date: 20041129
  Serious: Yes (Hospitalization)
  Sender: FDA-Public Use
  Company Number: None

PATIENT
  Sex: Male

DRUGS (1)
  1. VINCRISTINE [Suspect]
     Indication: LEUKAEMIA
     Dosage: 2 MG X 1 Q 2 WEEKS
     Dates: start: 20021231

REACTIONS (3)
  - ASEPTIC NECROSIS BONE [None]
  - ASTHENIA [None]
  - BACK PAIN [None]
